FAERS Safety Report 13735999 (Version 1)
Quarter: 2017Q3

REPORT INFORMATION
  Report Type: Spontaneous
  Country: US (occurrence: US)
  Receive Date: 20170707
  Receipt Date: 20170707
  Transmission Date: 20171127
  Serious: Yes (Hospitalization)
  Sender: FDA-Public Use
  Company Number: None

PATIENT
  Age: 62 Year
  Sex: Female

DRUGS (1)
  1. HARVONI [Suspect]
     Active Substance: LEDIPASVIR\SOFOSBUVIR
     Indication: HEPATITIS C
     Dosage: ONE TABLET DAILY BY MOUTH
     Route: 048
     Dates: start: 20170620, end: 20170624

REACTIONS (2)
  - Disorientation [None]
  - Ammonia increased [None]

NARRATIVE: CASE EVENT DATE: 20170625
